FAERS Safety Report 4347029-X (Version None)
Quarter: 2004Q1

REPORT INFORMATION
  Report Type: 
  Country: None (occurrence: None)
  Receive Date: 20040329
  Receipt Date: 20040213
  Transmission Date: 20041129
  Serious: No
  Sender: FDA-Public Use
  Company Number: USA040259400

PATIENT
  Age: 18 Year
  Sex: Male
  Weight: 75 kg

DRUGS (3)
  1. STRATTERA [Suspect]
     Indication: ATTENTION DEFICIT/HYPERACTIVITY DISORDER
     Dosage: 40 MG/DAY
     Dates: start: 20040211, end: 20040212
  2. LEXAPRO [Concomitant]
  3. AMBIEN [Concomitant]

REACTIONS (7)
  - ANGER [None]
  - ANXIETY [None]
  - DEPRESSED MOOD [None]
  - DYSURIA [None]
  - EXCITABILITY [None]
  - INFREQUENT BOWEL MOVEMENTS [None]
  - PARAESTHESIA [None]
